FAERS Safety Report 24405146 (Version 1)
Quarter: 2024Q4

REPORT INFORMATION
  Report Type: Spontaneous
  Country: US (occurrence: US)
  Receive Date: 20241007
  Receipt Date: 20241007
  Transmission Date: 20250115
  Serious: Yes (Other)
  Sender: SANOFI AVENTIS
  Company Number: US-SA-2024SA286918

PATIENT
  Sex: Female
  Weight: 104.32 kg

DRUGS (35)
  1. DUPIXENT [Suspect]
     Active Substance: DUPILUMAB
     Indication: Neurodermatitis
     Dosage: 300 MG, QOW
     Route: 058
     Dates: end: 202405
  2. TACROLIMUS [Concomitant]
     Active Substance: TACROLIMUS
  3. RABEPRAZOLE SODIUM [Concomitant]
     Active Substance: RABEPRAZOLE SODIUM
  4. PREDNISONE [Concomitant]
     Active Substance: PREDNISONE
  5. PANTOPRAZOLE SODIUM [Concomitant]
     Active Substance: PANTOPRAZOLE SODIUM
  6. FLUOCINOLONE ACETONIDE [Concomitant]
     Active Substance: FLUOCINOLONE ACETONIDE
  7. VILAZODONE HYDROCHLORIDE [Concomitant]
     Active Substance: VILAZODONE HYDROCHLORIDE
  8. RANOLAZINE [Concomitant]
     Active Substance: RANOLAZINE
  9. PREGABALIN [Concomitant]
     Active Substance: PREGABALIN
  10. OMEPRAZOLE [Concomitant]
     Active Substance: OMEPRAZOLE
  11. OLANZAPINE [Concomitant]
     Active Substance: OLANZAPINE
  12. METOCLOPRAMIDE HYDROCHLORIDE [Concomitant]
     Active Substance: METOCLOPRAMIDE HYDROCHLORIDE
  13. FLUTICASONE FUROATE\VILANTEROL TRIFENATATE [Concomitant]
     Active Substance: FLUTICASONE FUROATE\VILANTEROL TRIFENATATE
  14. DICYCLOMINE HYDROCHLORIDE [Concomitant]
     Active Substance: DICYCLOMINE HYDROCHLORIDE
  15. DICLOFENAC SODIUM [Concomitant]
     Active Substance: DICLOFENAC SODIUM
  16. ASPIRIN [Concomitant]
     Active Substance: ASPIRIN
  17. ALPRAZOLAM [Concomitant]
     Active Substance: ALPRAZOLAM
  18. ALBUTEROL SULFATE [Concomitant]
     Active Substance: ALBUTEROL SULFATE
  19. LEVOCETIRIZINE DIHYDROCHLORIDE [Concomitant]
     Active Substance: LEVOCETIRIZINE DIHYDROCHLORIDE
  20. FAMOTIDINE [Concomitant]
     Active Substance: FAMOTIDINE
  21. MECLIZINE HYDROCHLORIDE [Concomitant]
     Active Substance: MECLIZINE HYDROCHLORIDE
  22. BUTALBITAL, ACETAMINOPHEN, AND CAFFEINE [Concomitant]
     Active Substance: ACETAMINOPHEN\BUTALBITAL\CAFFEINE
  23. CHOLESTYRAMINE [Concomitant]
     Active Substance: CHOLESTYRAMINE
  24. HYDROXYZINE HYDROCHLORIDE [Concomitant]
     Active Substance: HYDROXYZINE HYDROCHLORIDE
  25. METOPROLOL SUCCINATE [Concomitant]
     Active Substance: METOPROLOL SUCCINATE
  26. MONTELUKAST SODIUM [Concomitant]
     Active Substance: MONTELUKAST SODIUM
  27. ALENDRONATE SODIUM [Concomitant]
     Active Substance: ALENDRONATE SODIUM
  28. IBUPROFEN [Concomitant]
     Active Substance: IBUPROFEN
  29. MEMANTINE [Concomitant]
     Active Substance: MEMANTINE
  30. ALBUTEROL\IPRATROPIUM [Concomitant]
     Active Substance: ALBUTEROL\IPRATROPIUM
  31. DONEPEZIL HYDROCHLORIDE [Concomitant]
     Active Substance: DONEPEZIL HYDROCHLORIDE
  32. ATORVASTATIN CALCIUM [Concomitant]
     Active Substance: ATORVASTATIN CALCIUM
  33. KETOCONAZOLE [Concomitant]
     Active Substance: KETOCONAZOLE
  34. CILOSTAZOL [Concomitant]
     Active Substance: CILOSTAZOL
  35. DEXAMETHASONE [Concomitant]
     Active Substance: DEXAMETHASONE

REACTIONS (1)
  - Dementia [Unknown]
